FAERS Safety Report 7429886-3 (Version None)
Quarter: 2011Q2

REPORT INFORMATION
  Report Type: 
  Country: None (occurrence: None)
  Receive Date: 20110421
  Receipt Date: 20110418
  Transmission Date: 20111010
  Serious: Yes (Death)
  Sender: FDA-Public Use
  Company Number: PL-ABBOTT-11P-129-0719007-00

PATIENT
  Sex: Female

DRUGS (1)
  1. VALPROATE SODIUM [Suspect]
     Indication: PRODUCT USED FOR UNKNOWN INDICATION

REACTIONS (4)
  - HEPATIC FAILURE [None]
  - DRUG RESISTANCE [None]
  - EPILEPSY [None]
  - HEPATOTOXICITY [None]
